FAERS Safety Report 4614243-5 (Version None)
Quarter: 2005Q1

REPORT INFORMATION
  Report Type: 
  Country: None (occurrence: None)
  Receive Date: 20050321
  Receipt Date: 20050311
  Transmission Date: 20050727
  Serious: Yes (Other)
  Sender: FDA-Public Use
  Company Number: US-ABBOTT-05P-163-0294002-00

PATIENT
  Sex: Female

DRUGS (3)
  1. SYNTHROID [Suspect]
     Indication: HYPOTHYROIDISM
     Route: 048
  2. PREVACID [Suspect]
     Indication: GASTROOESOPHAGEAL REFLUX DISEASE
     Route: 048
     Dates: start: 20030301
  3. OCUVITE [Suspect]
     Indication: VITAMIN SUPPLEMENTATION
     Route: 048

REACTIONS (3)
  - HEPATIC ENZYME INCREASED [None]
  - HEPATIC NECROSIS [None]
  - HEPATITIS [None]
